FAERS Safety Report 24206354 (Version 4)
Quarter: 2024Q3

REPORT INFORMATION
  Report Type: Spontaneous
  Country: IT (occurrence: IT)
  Receive Date: 20240813
  Receipt Date: 20240911
  Transmission Date: 20241017
  Serious: No
  Sender: TAKEDA
  Company Number: IT-TAKEDA-2024TUS080059

PATIENT
  Sex: Female

DRUGS (2)
  1. HUMAN IMMUNOGLOBULIN G [Suspect]
     Active Substance: HUMAN IMMUNOGLOBULIN G
     Indication: Product used for unknown indication
     Dosage: UNK
     Route: 058
  2. HYQVIA [Suspect]
     Active Substance: HUMAN IMMUNOGLOBULIN G\HYALURONIDASE (HUMAN RECOMBINANT)
     Indication: Product used for unknown indication
     Dosage: UNK
     Route: 065

REACTIONS (6)
  - No adverse event [Unknown]
  - Device infusion issue [Unknown]
  - Incorrect dose administered [Unknown]
  - Device occlusion [Unknown]
  - Device breakage [Unknown]
  - Inappropriate schedule of product administration [Unknown]
